FAERS Safety Report 13299782 (Version 2)
Quarter: 2017Q1

REPORT INFORMATION
  Report Type: Spontaneous
  Country: US (occurrence: US)
  Receive Date: 20170306
  Receipt Date: 20170314
  Transmission Date: 20170428
  Serious: Yes (Hospitalization)
  Sender: FDA-Public Use
  Company Number: US-TEIKOKU PHARMA USA-TPU2017-00120

PATIENT
  Sex: Female

DRUGS (6)
  1. LIDODERM [Suspect]
     Active Substance: LIDOCAINE
     Indication: ARTHRITIS
  2. LIDOCAINE PATCH [Suspect]
     Active Substance: LIDOCAINE
     Indication: DIABETIC NEUROPATHY
  3. LIDOCAINE PATCH [Suspect]
     Active Substance: LIDOCAINE
     Indication: SCIATICA
  4. LIDODERM [Suspect]
     Active Substance: LIDOCAINE
     Indication: SCIATICA
  5. LIDOCAINE PATCH [Suspect]
     Active Substance: LIDOCAINE
     Indication: ARTHRITIS
  6. LIDODERM [Suspect]
     Active Substance: LIDOCAINE
     Indication: DIABETIC NEUROPATHY

REACTIONS (2)
  - Hospitalisation [Unknown]
  - Drug ineffective for unapproved indication [Unknown]
